FAERS Safety Report 25936100 (Version 3)
Quarter: 2025Q4

REPORT INFORMATION
  Report Type: Spontaneous
  Country: JP (occurrence: JP)
  Receive Date: 20251017
  Receipt Date: 20251208
  Transmission Date: 20260117
  Serious: Yes (Other)
  Sender: MERCK SHARP & DOHME LLC
  Company Number: JP-009507513-2327724

PATIENT
  Age: 71 Year
  Sex: Male

DRUGS (3)
  1. KEYTRUDA [Suspect]
     Active Substance: PEMBROLIZUMAB
     Indication: Lung adenocarcinoma stage III
     Dosage: 200 MG ONCE EVERY 3 WEEKS 3 COURSES
     Route: 041
  2. CISPLATIN [Suspect]
     Active Substance: CISPLATIN
  3. PEMETREXED [Suspect]
     Active Substance: PEMETREXED

REACTIONS (5)
  - Cardiac dysfunction [Unknown]
  - Orthostatic hypotension [Unknown]
  - Therapy partial responder [Unknown]
  - Syncope [Not Recovered/Not Resolved]
  - Myocarditis [Unknown]
